FAERS Safety Report 9334472 (Version 1)
Quarter: 2013Q2

REPORT INFORMATION
  Report Type: Spontaneous
  Country: US (occurrence: US)
  Receive Date: 20130606
  Receipt Date: 20130606
  Transmission Date: 20140414
  Serious: No
  Sender: FDA-Public Use
  Company Number: US-AMGEN-USASP2013016964

PATIENT
  Age: 62 Year
  Sex: Female
  Weight: 76.74 kg

DRUGS (8)
  1. PROLIA [Suspect]
     Indication: OSTEOPOROSIS POSTMENOPAUSAL
     Dosage: 60 MG, Q6MO
     Route: 058
     Dates: start: 20120605
  2. SINGULAIR [Concomitant]
  3. CLARITIN                           /00413701/ [Concomitant]
  4. GABAPENTIN [Concomitant]
  5. CYMBALTA [Concomitant]
  6. CALCIUM WITH VITAMIN D             /00944201/ [Concomitant]
  7. BABY ASPIRIN [Concomitant]
     Dosage: 81 MG, BID
  8. CORTICOSTEROID DERIVATIVES [Concomitant]
     Indication: HYPERSENSITIVITY

REACTIONS (2)
  - Joint swelling [Unknown]
  - Arthralgia [Unknown]
